FAERS Safety Report 7652765-3 (Version None)
Quarter: 2011Q3

REPORT INFORMATION
  Report Type: 
  Country: None (occurrence: None)
  Receive Date: 20110802
  Receipt Date: 20110802
  Transmission Date: 20111222
  Serious: Yes (Hospitalization)
  Sender: FDA-Public Use
  Company Number: None

PATIENT
  Sex: Female
  Weight: 50 kg

DRUGS (2)
  1. CISPLATIN [Suspect]
     Dosage: 110 MG
     Dates: end: 20110601
  2. TAXOL [Suspect]
     Dosage: 286 MG
     Dates: end: 20110607

REACTIONS (16)
  - NEUTROPENIA [None]
  - FISTULA [None]
  - BLOOD CREATININE INCREASED [None]
  - RENAL FAILURE ACUTE [None]
  - VOMITING [None]
  - ABSCESS [None]
  - LIPASE INCREASED [None]
  - SYNCOPE [None]
  - FLATULENCE [None]
  - WOUND [None]
  - KLEBSIELLA TEST POSITIVE [None]
  - BLOOD AMYLASE INCREASED [None]
  - LOCALISED INTRAABDOMINAL FLUID COLLECTION [None]
  - STAPHYLOCOCCUS TEST POSITIVE [None]
  - DEHYDRATION [None]
  - ELECTROLYTE IMBALANCE [None]
